FAERS Safety Report 17145740 (Version 2)
Quarter: 2020Q4

REPORT INFORMATION
  Report Type: Report from Study
  Country: US (occurrence: US)
  Receive Date: 20191212
  Receipt Date: 20201231
  Transmission Date: 20210113
  Serious: Yes (Other)
  Sender: FDA-Public Use
  Company Number: US-ASTELLAS-2019US049068

PATIENT
  Age: 63 Year
  Sex: Male

DRUGS (2)
  1. LUPRON [Suspect]
     Active Substance: LEUPROLIDE ACETATE
     Indication: PRODUCT USED FOR UNKNOWN INDICATION
     Dosage: UNK UNK, UNKNOWN FREQ.
     Route: 065
  2. ENZALUTAMIDE [Suspect]
     Active Substance: ENZALUTAMIDE
     Indication: PROSTATE CANCER
     Route: 048
     Dates: start: 20190817

REACTIONS (3)
  - Fatigue [Not Recovered/Not Resolved]
  - Cataract [Not Recovered/Not Resolved]
  - Nausea [Not Recovered/Not Resolved]

NARRATIVE: CASE EVENT DATE: 201912
